FAERS Safety Report 20684769 (Version 1)
Quarter: 2022Q2

REPORT INFORMATION
  Report Type: Report from Study
  Country: DO (occurrence: DO)
  Receive Date: 20220407
  Receipt Date: 20220407
  Transmission Date: 20220721
  Serious: Yes (Other)
  Sender: FDA-Public Use
  Company Number: DO-ABBVIE-22K-279-4283976-00

PATIENT
  Age: 32 Year
  Sex: Female
  Weight: 46.308 kg

DRUGS (3)
  1. HUMIRA [Suspect]
     Active Substance: ADALIMUMAB
     Indication: Ankylosing spondylitis
     Route: 058
     Dates: start: 20180118, end: 20220126
  2. METHOTREXATE [Concomitant]
     Active Substance: METHOTREXATE
     Indication: Ankylosing spondylitis
     Route: 048
     Dates: end: 20220202
  3. PREDNISOLONE [Concomitant]
     Active Substance: PREDNISOLONE
     Indication: Ankylosing spondylitis
     Route: 048

REACTIONS (3)
  - Abortion missed [Unknown]
  - Haemorrhage [Recovering/Resolving]
  - Maternal exposure during pregnancy [Recovering/Resolving]

NARRATIVE: CASE EVENT DATE: 20220401
